FAERS Safety Report 18656363 (Version 4)
Quarter: 2022Q1

REPORT INFORMATION
  Report Type: Spontaneous
  Country: JP (occurrence: JP)
  Receive Date: 20201223
  Receipt Date: 20220304
  Transmission Date: 20220423
  Serious: Yes (Death, Hospitalization, Other)
  Sender: FDA-Public Use
  Company Number: JP-JNJFOC-20201200176

PATIENT
  Age: 79 Year
  Sex: Female
  Weight: 55 kg

DRUGS (7)
  1. IMBRUVICA [Suspect]
     Active Substance: IBRUTINIB
     Indication: Chronic lymphocytic leukaemia
     Dosage: IBRUTINIB:140 MG
     Route: 048
     Dates: start: 20200630, end: 20201026
  2. ACYCLOVIR [Concomitant]
     Active Substance: ACYCLOVIR
     Indication: Prophylaxis
     Route: 048
     Dates: start: 20200630, end: 20201026
  3. SULFAMETHOXAZOLE\TRIMETHOPRIM [Concomitant]
     Active Substance: SULFAMETHOXAZOLE\TRIMETHOPRIM
     Indication: Prophylaxis
     Route: 048
     Dates: start: 20200630, end: 20201026
  4. NEXIUM [Concomitant]
     Active Substance: ESOMEPRAZOLE MAGNESIUM
     Indication: Gastrooesophageal reflux disease
     Dosage: ESOMEPRAZOLE MAGNESIUM HYDRATE
     Route: 048
     Dates: end: 20201026
  5. PIMURO [SENNA SPP.] [Concomitant]
     Indication: Constipation
     Route: 048
  6. DELGOCITINIB [Concomitant]
     Active Substance: DELGOCITINIB
     Indication: Rash
     Dosage: DOSE UNKNOWN
     Route: 065
     Dates: start: 20200928, end: 20201025
  7. DAYVIGO [Concomitant]
     Active Substance: LEMBOREXANT
     Indication: Insomnia
     Route: 048
     Dates: start: 20201022, end: 20201024

REACTIONS (2)
  - Disseminated cryptococcosis [Fatal]
  - Blood creatine phosphokinase increased [Recovering/Resolving]

NARRATIVE: CASE EVENT DATE: 20201026
